FAERS Safety Report 9008475 (Version 2)
Quarter: 2013Q2

REPORT INFORMATION
  Report Type: Spontaneous
  Country: US (occurrence: US)
  Receive Date: 20130111
  Receipt Date: 20130419
  Transmission Date: 20140414
  Serious: Yes (Hospitalization)
  Sender: FDA-Public Use
  Company Number: US-B.I. PHARMACEUTICALS,INC./RIDGEFIELD-2012-BP-21396BP

PATIENT
  Age: 90 Year
  Sex: Female
  Weight: 68.04 kg

DRUGS (8)
  1. PRADAXA [Suspect]
     Indication: ANTICOAGULANT THERAPY
     Dosage: 300 MG
     Route: 048
     Dates: start: 20110526, end: 20110904
  2. PRADAXA [Suspect]
     Indication: ATRIAL FIBRILLATION
  3. METOPROLOL [Concomitant]
     Dosage: 50 MG
     Dates: start: 200303
  4. LIPITOR [Concomitant]
     Dosage: 20 MG
     Dates: start: 200806
  5. VALSARTAN HYDROCHLOROTHIAZIDE [Concomitant]
     Dates: start: 200303
  6. LEVOTHYROXINE [Concomitant]
     Dosage: 88 MCG
  7. FOLIC ACID [Concomitant]
     Dosage: 400 MG
     Dates: start: 200603
  8. SERTRALINE [Concomitant]

REACTIONS (4)
  - Renal failure acute [Not Recovered/Not Resolved]
  - Haemorrhage [Unknown]
  - Haematuria [Recovered/Resolved]
  - Coagulopathy [Not Recovered/Not Resolved]
